FAERS Safety Report 14255795 (Version 1)
Quarter: 2017Q4

REPORT INFORMATION
  Report Type: Spontaneous
  Country: AU (occurrence: AU)
  Receive Date: 20171206
  Receipt Date: 20171206
  Transmission Date: 20180321
  Serious: Yes (Death, Hospitalization, Other)
  Sender: FDA-Public Use
  Company Number: AU-ROCHE-2030909

PATIENT
  Age: 72 Year
  Sex: Female
  Weight: 68 kg

DRUGS (1)
  1. GAZYVA [Suspect]
     Active Substance: OBINUTUZUMAB
     Indication: CHRONIC LYMPHOCYTIC LEUKAEMIA
     Dosage: 1 TIME
     Route: 042
     Dates: start: 20160302, end: 20160303

REACTIONS (5)
  - Encephalopathy [Fatal]
  - Back pain [Unknown]
  - Respiratory arrest [Fatal]
  - Procedural complication [Fatal]
  - Altered state of consciousness [Fatal]

NARRATIVE: CASE EVENT DATE: 20160302
